FAERS Safety Report 7793752-4 (Version None)
Quarter: 2011Q4

REPORT INFORMATION
  Report Type: 
  Country: None (occurrence: None)
  Receive Date: 20111003
  Receipt Date: 20110927
  Transmission Date: 20120403
  Serious: Yes (Other)
  Sender: FDA-Public Use
  Company Number: US-ABBOTT-11P-163-0858619-00

PATIENT
  Sex: Female
  Weight: 72.64 kg

DRUGS (8)
  1. POTASSIUM [Concomitant]
     Indication: ELECTROLYTE SUBSTITUTION THERAPY
  2. HUMIRA [Suspect]
     Dates: start: 20110401, end: 20110901
  3. HUMIRA [Suspect]
     Dates: start: 20110401, end: 20110401
  4. EFFEXOR XR [Concomitant]
     Indication: ANXIETY
  5. HUMIRA [Suspect]
     Indication: PSORIASIS
     Dates: start: 20110201, end: 20110301
  6. ATENOLOL [Concomitant]
     Indication: BLOOD PRESSURE
     Route: 048
  7. EFFEXOR XR [Concomitant]
     Indication: DEPRESSION
     Route: 048
  8. AMILORIDE HCL AND HYDROCHLOROTHIAZIDE [Concomitant]
     Indication: POLYURIA
     Dosage: 5/50 ONCE DAILY
     Route: 048

REACTIONS (10)
  - TOOTH ABSCESS [None]
  - HAEMORRHAGE [None]
  - TOOTHACHE [None]
  - ABDOMINAL PAIN [None]
  - OVARIAN ENLARGEMENT [None]
  - OVARIAN NEOPLASM [None]
  - MUSCLE SPASMS [None]
  - PSORIASIS [None]
  - GINGIVAL SWELLING [None]
  - INJECTION SITE PAIN [None]
